FAERS Safety Report 24179997 (Version 1)
Quarter: 2024Q3

REPORT INFORMATION
  Report Type: Spontaneous
  Country: KR (occurrence: KR)
  Receive Date: 20240806
  Receipt Date: 20240806
  Transmission Date: 20241017
  Serious: Yes (Death, Hospitalization)
  Sender: Harrow Health
  Company Number: KR-IMP-2024000545

PATIENT
  Sex: Male

DRUGS (8)
  1. VIGAMOX [Suspect]
     Active Substance: MOXIFLOXACIN HYDROCHLORIDE
     Indication: Product used for unknown indication
     Route: 065
  2. LUCENTIS [Suspect]
     Active Substance: RANIBIZUMAB
     Indication: Neovascular age-related macular degeneration
     Dosage: 0.23 ML 1VIAL
     Route: 065
     Dates: start: 20240131, end: 20240131
  3. LUCENTIS [Suspect]
     Active Substance: RANIBIZUMAB
     Indication: Neovascular age-related macular degeneration
     Dosage: 0.23 ML 1VIAL
     Route: 065
     Dates: start: 20240314, end: 20240314
  4. LUCENTIS [Suspect]
     Active Substance: RANIBIZUMAB
     Indication: Neovascular age-related macular degeneration
     Dosage: 0.23 ML 1VIAL
     Route: 065
     Dates: start: 20240418, end: 20240418
  5. LUCENTIS [Suspect]
     Active Substance: RANIBIZUMAB
     Indication: Neovascular age-related macular degeneration
     Dosage: 0.23 ML 1VIAL
     Route: 065
     Dates: start: 20240523, end: 20240523
  6. LUCENTIS [Suspect]
     Active Substance: RANIBIZUMAB
     Indication: Neovascular age-related macular degeneration
     Dosage: 0.23 ML 1VIAL
     Route: 065
     Dates: start: 20240711, end: 20240711
  7. TROPHERINE [Concomitant]
     Indication: Product used for unknown indication
     Route: 065
  8. Qalone [Concomitant]
     Indication: Product used for unknown indication
     Route: 065

REACTIONS (1)
  - Parkinson^s disease [Fatal]

NARRATIVE: CASE EVENT DATE: 20140101
